FAERS Safety Report 5108639-5 (Version None)
Quarter: 2006Q3

REPORT INFORMATION
  Report Type: 
  Country: None (occurrence: None)
  Receive Date: 20060915
  Receipt Date: 20060907
  Transmission Date: 20061208
  Serious: Yes (Hospitalization)
  Sender: FDA-Public Use
  Company Number: FABR-11008

PATIENT
  Age: 63 Year
  Sex: Male
  Weight: 64 kg

DRUGS (4)
  1. FABRAZYME [Suspect]
     Indication: FABRY'S DISEASE
     Dosage: 70 MG Q2WKS IV
     Route: 042
     Dates: start: 20040522
  2. ACETAMINOPHEN [Concomitant]
  3. BETAMETHASONE [Concomitant]
  4. D-CHLORPHENIRAMINE MALEATE [Concomitant]

REACTIONS (4)
  - AZOTAEMIA [None]
  - CONDITION AGGRAVATED [None]
  - IMPLANTABLE DEFIBRILLATOR MALFUNCTION [None]
  - VENTRICULAR FIBRILLATION [None]
